FAERS Safety Report 16259311 (Version 3)
Quarter: 2021Q2

REPORT INFORMATION
  Report Type: Spontaneous
  Country: US (occurrence: US)
  Receive Date: 20190501
  Receipt Date: 20210521
  Transmission Date: 20210716
  Serious: Yes (Other)
  Sender: FDA-Public Use
  Company Number: US-ASTRAZENECA-2018SF65309

PATIENT
  Age: 25786 Day
  Sex: Female

DRUGS (16)
  1. PRILOSEC [Suspect]
     Active Substance: OMEPRAZOLE MAGNESIUM
     Dosage: FOR VARIOUS AND DATES
     Route: 048
  2. AZITHROMYCIN ANHYDROUS. [Concomitant]
     Active Substance: AZITHROMYCIN ANHYDROUS
  3. TERBINAFINE. [Concomitant]
     Active Substance: TERBINAFINE
  4. SPIRONOLACTONE. [Concomitant]
     Active Substance: SPIRONOLACTONE
  5. PLAVIX [Concomitant]
     Active Substance: CLOPIDOGREL BISULFATE
  6. AMLODIPINE [Concomitant]
     Active Substance: AMLODIPINE BESYLATE
  7. NEXIUM [Suspect]
     Active Substance: ESOMEPRAZOLE MAGNESIUM
     Dosage: FOR VARIOUS AND DATES
     Route: 048
  8. TIZANIDINE. [Concomitant]
     Active Substance: TIZANIDINE
  9. NOVOLOG [Concomitant]
     Active Substance: INSULIN ASPART
  10. LUNESTA [Concomitant]
     Active Substance: ESZOPICLONE
  11. CLOBETASOL [Concomitant]
     Active Substance: CLOBETASOL
  12. QUINAPRIL. [Concomitant]
     Active Substance: QUINAPRIL
  13. CELEBREX [Concomitant]
     Active Substance: CELECOXIB
  14. LIDODERM [Concomitant]
     Active Substance: LIDOCAINE
  15. GABAPENTIN. [Concomitant]
     Active Substance: GABAPENTIN
  16. HYDROCODONE [Concomitant]
     Active Substance: HYDROCODONE

REACTIONS (4)
  - Renal failure [Unknown]
  - Rebound acid hypersecretion [Unknown]
  - Renal injury [Unknown]
  - Chronic kidney disease [Unknown]

NARRATIVE: CASE EVENT DATE: 20190109
